FAERS Safety Report 6554590-3 (Version None)
Quarter: 2010Q1

REPORT INFORMATION
  Report Type: 
  Country: None (occurrence: None)
  Receive Date: 20100127
  Receipt Date: 20100115
  Transmission Date: 20100710
  Serious: Yes (Other)
  Sender: FDA-Public Use
  Company Number: JP-SANOFI-AVENTIS-2010SA002558

PATIENT
  Age: 68 Year
  Sex: Male

DRUGS (8)
  1. BLINDED THERAPY [Suspect]
     Indication: ANGINA PECTORIS
     Route: 048
     Dates: start: 20090116, end: 20090410
  2. BLINDED THERAPY [Suspect]
     Route: 048
     Dates: start: 20090116, end: 20090410
  3. CLOPIDOGREL BISULFATE [Suspect]
     Indication: ANGINA PECTORIS
     Route: 048
     Dates: start: 20090411
  4. CLOPIDOGREL BISULFATE [Suspect]
     Route: 048
     Dates: start: 20090411
  5. ASPIRIN [Concomitant]
     Route: 048
     Dates: start: 20090116
  6. OMEPRAL [Concomitant]
     Route: 048
     Dates: start: 20090116
  7. LIPITOR [Concomitant]
     Route: 048
     Dates: start: 20090116
  8. DIOVANE [Concomitant]
     Route: 048
     Dates: start: 20090116

REACTIONS (1)
  - CORONARY ARTERY RESTENOSIS [None]
